FAERS Safety Report 8044053-0 (Version None)
Quarter: 2012Q1

REPORT INFORMATION
  Report Type: 
  Country: None (occurrence: None)
  Receive Date: 20120111
  Receipt Date: 20120111
  Transmission Date: 20120608
  Serious: No
  Sender: FDA-Public Use
  Company Number: None

PATIENT
  Age: 62 Year
  Sex: Male
  Weight: 79.5 kg

DRUGS (1)
  1. TELAPREVIR [Suspect]
     Indication: HEPATITIS C
     Dosage: 2 TABS TID PO
     Route: 048
     Dates: start: 20111013, end: 20120105

REACTIONS (8)
  - CONSTIPATION [None]
  - NAUSEA [None]
  - ABDOMINAL PAIN [None]
  - PRURITUS [None]
  - RETCHING [None]
  - VOMITING [None]
  - FATIGUE [None]
  - URTICARIA [None]
